FAERS Safety Report 9751716 (Version 3)
Quarter: 2013Q4

REPORT INFORMATION
  Report Type: Spontaneous
  Country: US (occurrence: US)
  Receive Date: 20131213
  Receipt Date: 20131227
  Transmission Date: 20140711
  Serious: Yes (Death, Other)
  Sender: FDA-Public Use
  Company Number: US-ROCHE-1307705

PATIENT
  Age: 62 Year
  Sex: Female
  Weight: 74.91 kg

DRUGS (11)
  1. AVASTIN [Suspect]
     Indication: NON-SMALL CELL LUNG CANCER
     Route: 042
     Dates: end: 20120412
  2. ALIMTA [Suspect]
     Indication: NON-SMALL CELL LUNG CANCER
     Route: 042
     Dates: end: 20120112
  3. CARBOPLATIN [Suspect]
     Indication: NON-SMALL CELL LUNG CANCER
     Route: 065
     Dates: start: 20110908
  4. TAXOL [Suspect]
     Indication: NON-SMALL CELL LUNG CANCER
     Route: 065
     Dates: start: 20110908
  5. TUMS [Concomitant]
  6. ALLEGRA [Concomitant]
  7. PRILOSEC [Concomitant]
  8. SENNA [Concomitant]
  9. DILANTIN [Concomitant]
  10. COUMADIN [Concomitant]
  11. COMPAZINE [Concomitant]

REACTIONS (3)
  - Posterior reversible encephalopathy syndrome [Unknown]
  - Progressive multifocal leukoencephalopathy [Recovered/Resolved]
  - Death [Fatal]
